FAERS Safety Report 22374132 (Version 1)
Quarter: 2023Q2

REPORT INFORMATION
  Report Type: Spontaneous
  Country: US (occurrence: US)
  Receive Date: 20230526
  Receipt Date: 20230526
  Transmission Date: 20230721
  Serious: Yes (Hospitalization)
  Sender: FDA-Public Use
  Company Number: US-LUPIN PHARMACEUTICALS INC.-2023-04008

PATIENT
  Age: 56 Year
  Sex: Male

DRUGS (1)
  1. PHENYTOIN SODIUM [Suspect]
     Active Substance: PHENYTOIN SODIUM
     Indication: Epilepsy
     Dosage: UNK
     Route: 065

REACTIONS (8)
  - Confusional state [Recovered/Resolved]
  - Ataxia [Recovered/Resolved]
  - Fall [Recovered/Resolved]
  - Disorientation [Recovered/Resolved]
  - Nystagmus [Recovered/Resolved]
  - Gingival hypertrophy [Recovered/Resolved]
  - Bone deformity [Recovered/Resolved]
  - Toxicity to various agents [Recovered/Resolved]
